FAERS Safety Report 9128665 (Version 1)
Quarter: 2013Q1

REPORT INFORMATION
  Report Type: Spontaneous
  Country: US (occurrence: US)
  Receive Date: 20130228
  Receipt Date: 20130228
  Transmission Date: 20140127
  Serious: Yes (Other)
  Sender: FDA-Public Use
  Company Number: US-ELI_LILLY_AND_COMPANY-US201302006445

PATIENT
  Sex: Female
  Weight: 98.41 kg

DRUGS (7)
  1. BYDUREON [Suspect]
     Indication: TYPE 2 DIABETES MELLITUS
     Dosage: 2 MG, WEEKLY (1/W)
     Route: 058
  2. BYETTA [Suspect]
     Indication: TYPE 2 DIABETES MELLITUS
     Dosage: 5 UG, BID
     Route: 058
     Dates: start: 200506
  3. BYETTA [Suspect]
     Dosage: 10 UG, BID
     Route: 058
  4. PAXIL CR [Concomitant]
     Dosage: 37.5 MG, QD
     Route: 048
  5. CRESTOR [Concomitant]
     Dosage: 5 MG, QD
     Route: 048
  6. VITAMIN D [Concomitant]
     Indication: VITAMIN D DEFICIENCY
     Dosage: 50000 IU, WEEKLY (1/W)
     Route: 048
  7. MULTIVITAMIN [Concomitant]
     Dosage: UNK, QD
     Route: 048

REACTIONS (13)
  - Thyroid neoplasm [Recovering/Resolving]
  - Head discomfort [Recovering/Resolving]
  - Granuloma annulare [Not Recovered/Not Resolved]
  - Onychoclasis [Not Recovered/Not Resolved]
  - Nail growth abnormal [Not Recovered/Not Resolved]
  - Blister [Not Recovered/Not Resolved]
  - Skin exfoliation [Not Recovered/Not Resolved]
  - Hypersensitivity [Not Recovered/Not Resolved]
  - Trichorrhexis [Not Recovered/Not Resolved]
  - Vitamin D deficiency [Unknown]
  - Hyperhidrosis [Not Recovered/Not Resolved]
  - Weight decreased [Recovered/Resolved]
  - Alopecia [Not Recovered/Not Resolved]
